FAERS Safety Report 11059566 (Version 4)
Quarter: 2016Q1

REPORT INFORMATION
  Report Type: Report from Study
  Country: US (occurrence: US)
  Receive Date: 20150423
  Receipt Date: 20160211
  Transmission Date: 20160525
  Serious: Yes (Other)
  Sender: FDA-Public Use
  Company Number: US-SA-2015SA014802

PATIENT
  Age: 40 Year
  Sex: Female

DRUGS (11)
  1. AUBAGIO [Suspect]
     Active Substance: TERIFLUNOMIDE
     Indication: MULTIPLE SCLEROSIS
     Route: 048
     Dates: start: 20150129
  2. AUBAGIO [Suspect]
     Active Substance: TERIFLUNOMIDE
     Indication: MULTIPLE SCLEROSIS
     Route: 048
  3. ASPIR [Concomitant]
     Active Substance: ASPIRIN
  4. CELEXA [Concomitant]
     Active Substance: CITALOPRAM HYDROBROMIDE
  5. VITAMIN B12 [Concomitant]
     Active Substance: CYANOCOBALAMIN
     Indication: VITAMIN B12 DEFICIENCY
  6. NAPROXEN. [Concomitant]
     Active Substance: NAPROXEN
  7. FOLIC ACID. [Concomitant]
     Active Substance: FOLIC ACID
     Indication: VITAMIN B12 DEFICIENCY
  8. HEPATITIS B VACCINE [Concomitant]
     Active Substance: HEPATITIS B VIRUS VACCINE
     Dosage: #2:
     Dates: start: 201504
  9. VALIUM [Concomitant]
     Active Substance: DIAZEPAM
  10. AMBIEN [Concomitant]
     Active Substance: ZOLPIDEM TARTRATE
  11. VITAMIN D [Concomitant]
     Active Substance: CHOLECALCIFEROL
     Dosage: DOSE:1000 UNIT(S)

REACTIONS (32)
  - Multiple sclerosis relapse [Unknown]
  - Hypoaesthesia [Unknown]
  - Paraesthesia [Unknown]
  - Confusional state [Unknown]
  - Cough [Unknown]
  - Gait disturbance [Unknown]
  - Influenza like illness [Unknown]
  - Limb discomfort [Unknown]
  - Dizziness [Unknown]
  - Dizziness [Unknown]
  - Headache [Unknown]
  - Nasal congestion [Unknown]
  - Burning sensation [Not Recovered/Not Resolved]
  - Diarrhoea [Recovered/Resolved]
  - Drug dose omission [Unknown]
  - Panic attack [Unknown]
  - Diarrhoea [Recovered/Resolved]
  - White blood cell count decreased [Unknown]
  - Sleep disorder [Unknown]
  - Paraesthesia oral [Unknown]
  - Dysmenorrhoea [Unknown]
  - Muscle spasms [Not Recovered/Not Resolved]
  - Wheezing [Unknown]
  - Rhinorrhoea [Unknown]
  - Hypoaesthesia oral [Unknown]
  - Feeling hot [Unknown]
  - Fatigue [Unknown]
  - Vertigo [Unknown]
  - Thrombosis [Unknown]
  - Feeling abnormal [Not Recovered/Not Resolved]
  - Anxiety [Unknown]
  - Goitre [Unknown]

NARRATIVE: CASE EVENT DATE: 2015
